FAERS Safety Report 7669563-7 (Version None)
Quarter: 2011Q3

REPORT INFORMATION
  Report Type: 
  Country: None (occurrence: None)
  Receive Date: 20110808
  Receipt Date: 20110729
  Transmission Date: 20111222
  Serious: Yes (Hospitalization)
  Sender: FDA-Public Use
  Company Number: CN-B.I. PHARMACEUTICALS,INC./RIDGEFIELD-2011-BP-19193YA

PATIENT
  Age: 89 Year
  Sex: Male

DRUGS (2)
  1. PROSCAR [Concomitant]
  2. TAMSULOSIN HCL [Suspect]
     Dosage: 0.2 MG
     Route: 048
     Dates: start: 20110724, end: 20110729

REACTIONS (3)
  - DIZZINESS [None]
  - ABASIA [None]
  - ALTERED STATE OF CONSCIOUSNESS [None]
